FAERS Safety Report 9822133 (Version 1)
Quarter: 2014Q1

REPORT INFORMATION
  Report Type: Spontaneous
  Country: GB (occurrence: GB)
  Receive Date: 20140116
  Receipt Date: 20140116
  Transmission Date: 20141002
  Serious: Yes (Other)
  Sender: FDA-Public Use
  Company Number: GB-PFIZER INC-2014014059

PATIENT
  Age: 66 Year
  Sex: Male
  Weight: 86 kg

DRUGS (6)
  1. ATENOLOL [Suspect]
     Dosage: UNK
     Dates: start: 20131219
  2. AMOXICILLIN [Concomitant]
     Dosage: UNK
     Dates: start: 20131227, end: 20140101
  3. LERCANIDIPINE HYDROCHLORIDE [Concomitant]
     Dosage: UNK
     Dates: start: 20130917, end: 20140103
  4. PARACETAMOL [Concomitant]
     Dosage: UNK
     Dates: start: 20131011, end: 20131218
  5. TRAMADOL [Concomitant]
     Dosage: UNK
     Dates: start: 20130917, end: 20140103
  6. VISCOTEARS [Concomitant]
     Dosage: UNK
     Dates: start: 20131011, end: 20131108

REACTIONS (1)
  - Bronchospasm [Recovering/Resolving]
